FAERS Safety Report 11852362 (Version 2)
Quarter: 2016Q1

REPORT INFORMATION
  Report Type: Report from Study
  Country: JP (occurrence: JP)
  Receive Date: 20151218
  Receipt Date: 20160316
  Transmission Date: 20160526
  Serious: Yes (Hospitalization, Other)
  Sender: FDA-Public Use
  Company Number: JP-OTSUKA-2015_016834

PATIENT
  Age: 62 Year
  Sex: Female

DRUGS (9)
  1. TOLVAPTAN [Suspect]
     Active Substance: TOLVAPTAN
     Dosage: 15 MG, IN THE EVENING
     Route: 048
     Dates: start: 20150924, end: 20151012
  2. DIOVAN [Concomitant]
     Active Substance: VALSARTAN
     Indication: PRODUCT USED FOR UNKNOWN INDICATION
     Dosage: 80 MG, DAILY DOSE
     Route: 048
  3. TOLVAPTAN [Suspect]
     Active Substance: TOLVAPTAN
     Dosage: 15 MG, IN THE EVENING
     Route: 048
     Dates: start: 20150527, end: 20150824
  4. TOLVAPTAN [Suspect]
     Active Substance: TOLVAPTAN
     Indication: CONGENITAL CYSTIC KIDNEY DISEASE
     Dosage: 22.5 MG, IN THE MORNING
     Route: 048
     Dates: start: 20150525, end: 20150526
  5. TOLVAPTAN [Suspect]
     Active Substance: TOLVAPTAN
     Dosage: 7.5 MG, BID, IN THE MORNING, IN THE EVENING
     Route: 048
     Dates: start: 20151013, end: 20160131
  6. TOLVAPTAN [Suspect]
     Active Substance: TOLVAPTAN
     Dosage: 45 MG, IN THE MORNING
     Route: 048
     Dates: start: 20150924, end: 20151012
  7. ADALAT [Concomitant]
     Active Substance: NIFEDIPINE
     Indication: PRODUCT USED FOR UNKNOWN INDICATION
     Dosage: 20 MG, DAILY DOSE
     Route: 048
  8. TOLVAPTAN [Suspect]
     Active Substance: TOLVAPTAN
     Dosage: 7.5 MG, IN THE EVENING
     Route: 048
     Dates: start: 20150525, end: 20150526
  9. TOLVAPTAN [Suspect]
     Active Substance: TOLVAPTAN
     Dosage: 45 MG, IN THE MORNING
     Route: 048
     Dates: start: 20150527, end: 20150824

REACTIONS (3)
  - Hepatic cyst infection [Recovered/Resolved]
  - Urinary tract infection [Unknown]
  - Hepatic function abnormal [Recovered/Resolved]

NARRATIVE: CASE EVENT DATE: 20150823
